FAERS Safety Report 10955538 (Version 1)
Quarter: 2015Q1

REPORT INFORMATION
  Report Type: Spontaneous
  Country: US (occurrence: None)
  Receive Date: 20150325
  Receipt Date: 20150325
  Transmission Date: 20150721
  Serious: No
  Sender: FDA-Public Use
  Company Number: None

PATIENT
  Age: 65 Year
  Sex: Male
  Weight: 120.6 kg

DRUGS (7)
  1. VANCOMYCIN [Concomitant]
     Active Substance: VANCOMYCIN
  2. ZOSYN [Concomitant]
     Active Substance: PIPERACILLIN SODIUM\TAZOBACTAM SODIUM
  3. ITRACONAZOLE. [Concomitant]
     Active Substance: ITRACONAZOLE
  4. CYTARABINE. [Suspect]
     Active Substance: CYTARABINE
     Dates: start: 20150303
  5. PRAVASTATIN SODIUM. [Suspect]
     Active Substance: PRAVASTATIN SODIUM
     Dates: start: 20150304
  6. ACYCLOVIR. [Concomitant]
     Active Substance: ACYCLOVIR
  7. IDARUBICIN [Suspect]
     Active Substance: IDARUBICIN
     Dates: start: 20150302

REACTIONS (11)
  - Respiratory distress [None]
  - Pulmonary oedema [None]
  - White blood cell count decreased [None]
  - Acute pulmonary oedema [None]
  - Neutrophil count decreased [None]
  - Tachycardia [None]
  - Cardiogenic shock [None]
  - Septic shock [None]
  - Platelet count decreased [None]
  - Haemoglobin decreased [None]
  - Acute myocardial infarction [None]

NARRATIVE: CASE EVENT DATE: 20150318
